FAERS Safety Report 22275123 (Version 1)
Quarter: 2023Q2

REPORT INFORMATION
  Report Type: Spontaneous
  Country: JP (occurrence: JP)
  Receive Date: 20230502
  Receipt Date: 20230502
  Transmission Date: 20230721
  Serious: Yes (Life-Threatening, Hospitalization)
  Sender: FDA-Public Use
  Company Number: JP-TEVA-2023-JP-2883447

PATIENT
  Age: 6 Day
  Sex: Male

DRUGS (2)
  1. ALPROSTADIL [Suspect]
     Active Substance: ALPROSTADIL
     Indication: Patent ductus arteriosus
     Dosage: 5.3 NG/KG/MIN
     Route: 042
  2. NITROGEN [Suspect]
     Active Substance: NITROGEN
     Indication: Hypoxia
     Route: 050

REACTIONS (1)
  - Drug ineffective [Unknown]
